FAERS Safety Report 10697280 (Version 1)
Quarter: 2015Q1

REPORT INFORMATION
  Report Type: Spontaneous
  Country: US (occurrence: None)
  Receive Date: 20150107
  Receipt Date: 20150107
  Transmission Date: 20150721
  Serious: Yes (Life-Threatening, Hospitalization)
  Sender: FDA-Public Use
  Company Number: None

PATIENT
  Age: 32 Year
  Sex: Female
  Weight: 68.04 kg

DRUGS (1)
  1. MIRENA [Suspect]
     Active Substance: LEVONORGESTREL
     Dosage: IUD?5 YRS

REACTIONS (9)
  - Thrombosis [None]
  - Legal problem [None]
  - Meningitis aseptic [None]
  - Immune system disorder [None]
  - Disease recurrence [None]
  - Fear [None]
  - Immune thrombocytopenic purpura [None]
  - Pneumonia [None]
  - Economic problem [None]

NARRATIVE: CASE EVENT DATE: 20141030
